FAERS Safety Report 8221945-0 (Version None)
Quarter: 2012Q1

REPORT INFORMATION
  Report Type: 
  Country: None (occurrence: None)
  Receive Date: 20120303
  Receipt Date: 20110630
  Transmission Date: 20120608
  Serious: Yes (Other)
  Sender: FDA-Public Use
  Company Number: PHHY2011US33986

PATIENT
  Age: 14 Year
  Sex: Male

DRUGS (8)
  1. AFINITOR [Suspect]
     Indication: TUBEROUS SCLEROSIS
     Dosage: 2.5 MG, DAILY, ORAL, 5 MG, DAILY, ORAL
     Route: 048
     Dates: start: 20110416
  2. KEPPRA [Concomitant]
  3. TRILEPTAL [Concomitant]
  4. MULTIPLE VITAMINS (ASCORBIC ACID, ERGOCALCIFEROL, FOLIC ACID, RETINOL, [Concomitant]
  5. BACTRIM [Concomitant]
  6. CALCIUM CARBONATE [Concomitant]
  7. ZANTAC [Concomitant]
  8. DIASTAT [Concomitant]

REACTIONS (2)
  - VOMITING [None]
  - BLOOD SODIUM DECREASED [None]
